FAERS Safety Report 5711071-4 (Version None)
Quarter: 2008Q2

REPORT INFORMATION
  Report Type: 
  Country: None (occurrence: None)
  Receive Date: 20080421
  Receipt Date: 20080414
  Transmission Date: 20081010
  Serious: Yes (Hospitalization)
  Sender: FDA-Public Use
  Company Number: DE-WYE-G01348708

PATIENT
  Sex: Female
  Weight: 81.5 kg

DRUGS (4)
  1. VENLAFAXINE HCL [Suspect]
     Indication: DEPRESSION
     Route: 048
     Dates: start: 19970101
  2. VENLAFAXINE HCL [Suspect]
     Dosage: DOSE AND FREQUENCY UNKNOWN
     Route: 048
     Dates: end: 20060101
  3. VENLAFAXINE HCL [Suspect]
     Route: 048
     Dates: start: 20060101
  4. VENLAFAXINE HCL [Suspect]
     Route: 048

REACTIONS (7)
  - BRONCHITIS CHRONIC [None]
  - CARDIOMEGALY [None]
  - DRUG EFFECT DECREASED [None]
  - DRUG WITHDRAWAL SYNDROME [None]
  - HYPERHIDROSIS [None]
  - HYPERTENSION [None]
  - MUSCULAR WEAKNESS [None]
